FAERS Safety Report 8232964-2 (Version None)
Quarter: 2012Q1

REPORT INFORMATION
  Report Type: 
  Country: None (occurrence: None)
  Receive Date: 20120325
  Receipt Date: 20120312
  Transmission Date: 20120608
  Serious: Yes (Other)
  Sender: FDA-Public Use
  Company Number: AU-BRISTOL-MYERS SQUIBB COMPANY-16473514

PATIENT
  Age: 52 Year
  Sex: Female

DRUGS (6)
  1. VENLAFAXINE HCL [Interacting]
  2. IRBESARTAN [Suspect]
     Indication: MENTAL DISORDER
  3. METOCLOPRAMIDE [Interacting]
  4. CELECOXIB [Interacting]
  5. ATORVASTATIN [Interacting]
     Indication: MENTAL DISORDER
  6. TRAMADOL HCL [Interacting]

REACTIONS (4)
  - DRUG INTERACTION [None]
  - SUICIDE ATTEMPT [None]
  - AKATHISIA [None]
  - PHYSICAL ASSAULT [None]
